FAERS Safety Report 8270836-8 (Version None)
Quarter: 2012Q2

REPORT INFORMATION
  Report Type: 
  Country: None (occurrence: None)
  Receive Date: 20120406
  Receipt Date: 20120323
  Transmission Date: 20120825
  Serious: Yes (Other)
  Sender: FDA-Public Use
  Company Number: 2012000056

PATIENT
  Age: 69 Year
  Sex: Female

DRUGS (5)
  1. THIAMINE HCL [Concomitant]
  2. ACEON [Suspect]
     Indication: ESSENTIAL HYPERTENSION
     Dosage: 2.5 MG, QD, ORAL
     Route: 048
     Dates: end: 20120216
  3. LIPITOR [Concomitant]
  4. NEXIUM [Concomitant]
  5. ASPIRIN [Concomitant]

REACTIONS (3)
  - ANGIOEDEMA [None]
  - DYSPHAGIA [None]
  - LIP ULCERATION [None]
